FAERS Safety Report 10012135 (Version 1)
Quarter: 2014Q1

REPORT INFORMATION
  Report Type: Spontaneous
  Country: CA (occurrence: CA)
  Receive Date: 20140314
  Receipt Date: 20140314
  Transmission Date: 20141002
  Serious: Yes (Other)
  Sender: FDA-Public Use
  Company Number: CA-GLAXOSMITHKLINE-A1063954A

PATIENT
  Age: 27 Year
  Sex: Male

DRUGS (3)
  1. LAMICTAL [Suspect]
     Indication: PRODUCT USED FOR UNKNOWN INDICATION
     Route: 065
  2. INVEGA [Suspect]
  3. EPIVAL [Concomitant]

REACTIONS (1)
  - Psychotic disorder [Unknown]
